FAERS Safety Report 20702223 (Version 1)
Quarter: 2022Q2

REPORT INFORMATION
  Report Type: Spontaneous
  Country: US (occurrence: None)
  Receive Date: 20220411
  Receipt Date: 20220411
  Transmission Date: 20220721
  Serious: Yes (Hospitalization, Disabling, Other)
  Sender: FDA-Public Use
  Company Number: None

PATIENT
  Age: 89 Year
  Sex: Female
  Weight: 67.5 kg

DRUGS (5)
  1. GABAPENTIN [Suspect]
     Active Substance: GABAPENTIN
     Indication: Pain
     Dosage: OTHER QUANTITY : 1 TABLET(S);?FREQUENCY : DAILY;?
     Route: 048
     Dates: start: 20220118, end: 20220129
  2. METOPROLOL [Concomitant]
     Active Substance: METOPROLOL
  3. FIBER [Concomitant]
     Active Substance: PSYLLIUM HUSK
  4. TYLENOL EXTRA STRENGTH [Concomitant]
     Active Substance: ACETAMINOPHEN
  5. VITAMIN D [Concomitant]
     Active Substance: VITAMIN D NOS

REACTIONS (7)
  - Gait inability [None]
  - Loss of personal independence in daily activities [None]
  - Off label use [None]
  - Coordination abnormal [None]
  - Drug ineffective [None]
  - Hypokinesia [None]
  - Inadequate analgesia [None]

NARRATIVE: CASE EVENT DATE: 20220127
